FAERS Safety Report 6532988-7 (Version None)
Quarter: 2010Q1

REPORT INFORMATION
  Report Type: 
  Country: None (occurrence: None)
  Receive Date: 20100111
  Receipt Date: 20100105
  Transmission Date: 20100710
  Serious: Yes (Hospitalization, Other)
  Sender: FDA-Public Use
  Company Number: PHHY2010BR00640

PATIENT
  Age: 83 Year
  Sex: Female
  Weight: 70 kg

DRUGS (11)
  1. DIOVAN HCT [Suspect]
     Indication: HYPERTENSION
     Dosage: 1 TABLET (320/12.5 MG) IN THE MORNING
     Route: 048
  2. DIOVAN [Suspect]
  3. SIMVASTATIN [Concomitant]
     Indication: BLOOD CHOLESTEROL
     Dosage: 1 DF, QD
     Route: 048
     Dates: start: 20090401
  4. SEROQUEL [Concomitant]
     Indication: AGITATION
     Dosage: 1 TABLET UPON NEED
     Route: 048
     Dates: start: 20091201
  5. PAROXETINE HYDROCHLORIDE [Concomitant]
     Indication: DEPRESSION
     Dosage: 1 TABLET IN THE MORNING
     Route: 048
     Dates: start: 20091001
  6. OMEPRAZOLE [Concomitant]
     Dosage: 1 CAPSULE IN THE MORNING
     Route: 048
     Dates: start: 20091101
  7. LUFTAL [Concomitant]
     Indication: FLATULENCE
     Dosage: 40 DRP, TID
     Dates: start: 20091227
  8. CARVEDILOL [Concomitant]
     Indication: HYPERTENSION
     Dosage: 1 TABLET A DAY
     Route: 048
     Dates: start: 20091227
  9. VITASCORBOL [Concomitant]
     Dosage: 1 TABLET ADAY
     Route: 048
     Dates: start: 20091227
  10. PARACETAMOL [Concomitant]
     Indication: ARTHRALGIA
     Dosage: 1 DF, BID
     Route: 048
     Dates: start: 20091227
  11. ASPIRIN [Concomitant]
     Dosage: 1 TABLET AT LUNCH
     Route: 048
     Dates: start: 20091227

REACTIONS (6)
  - BLOOD PRESSURE INCREASED [None]
  - CEREBROVASCULAR ACCIDENT [None]
  - DYSPNOEA [None]
  - HEMIPLEGIA [None]
  - SPEECH DISORDER [None]
  - URINARY TRACT INFECTION [None]
